FAERS Safety Report 8551362-5 (Version None)
Quarter: 2012Q3

REPORT INFORMATION
  Report Type: 
  Country: None (occurrence: None)
  Receive Date: 20120730
  Receipt Date: 20120720
  Transmission Date: 20120928
  Serious: Yes (Other)
  Sender: FDA-Public Use
  Company Number: JP-VERTEX PHARMACEUTICALS INC.-AE-2012-010881

PATIENT
  Age: 68 Year
  Sex: Female

DRUGS (10)
  1. RIBAVIRIN [Concomitant]
     Indication: HEPATITIS C
     Route: 048
     Dates: end: 20120509
  2. RIBAVIRIN [Concomitant]
     Route: 048
     Dates: start: 20120510
  3. PEGINTERFERON ALFA-2B [Concomitant]
     Route: 058
     Dates: start: 20120606
  4. LANSOPRAZOLE [Concomitant]
     Route: 048
     Dates: start: 20120509
  5. PEGINTERFERON ALFA-2B [Concomitant]
     Route: 058
     Dates: end: 20120605
  6. LANSOPRAZOLE [Concomitant]
     Route: 048
     Dates: start: 20120523
  7. PEGINTERFERON ALFA-2B [Concomitant]
     Indication: HEPATITIS C
     Route: 058
  8. TELAVIC (TELAPREVIR) [Suspect]
     Indication: HEPATITIS C
     Route: 048
     Dates: start: 20120405, end: 20120502
  9. TELAVIC (TELAPREVIR) [Suspect]
     Route: 048
     Dates: start: 20120503
  10. LORFENAMIN [Concomitant]
     Route: 048
     Dates: start: 20120509

REACTIONS (1)
  - WHITE BLOOD CELL COUNT DECREASED [None]
